FAERS Safety Report 17742141 (Version 2)
Quarter: 2020Q2

REPORT INFORMATION
  Report Type: Spontaneous
  Country: ES (occurrence: ES)
  Receive Date: 20200504
  Receipt Date: 20200602
  Transmission Date: 20200714
  Serious: Yes (Other)
  Sender: FDA-Public Use
  Company Number: ES-ACCORD-180626

PATIENT
  Age: 49 Year
  Sex: Female
  Weight: 69 kg

DRUGS (10)
  1. XELODA [Concomitant]
     Active Substance: CAPECITABINE
     Route: 048
  2. PREDNISONE. [Concomitant]
     Active Substance: PREDNISONE
  3. FORTASEC [Concomitant]
     Active Substance: LOPERAMIDE HYDROCHLORIDE
  4. LAPATINIB/LAPATINIB DITOSYLATE [Suspect]
     Active Substance: LAPATINIB
     Indication: BREAST NEOPLASM
     Route: 065
  5. AMITRIPTYLINE [Concomitant]
     Active Substance: AMITRIPTYLINE
  6. HERCEPTIN [Suspect]
     Active Substance: TRASTUZUMAB
     Indication: BREAST NEOPLASM
     Route: 065
  7. TRASTUZUMAB/EMTANSINE [Suspect]
     Active Substance: ADO-TRASTUZUMAB EMTANSINE
     Indication: BREAST NEOPLASM
     Route: 065
  8. PERTUZUMAB. [Concomitant]
     Active Substance: PERTUZUMAB
     Route: 065
  9. CAPECITABINE. [Suspect]
     Active Substance: CAPECITABINE
     Indication: BREAST NEOPLASM
     Route: 048
  10. PRIMPERAN [Concomitant]
     Active Substance: METOCLOPRAMIDE HYDROCHLORIDE

REACTIONS (9)
  - Disease progression [Unknown]
  - Neoplasm recurrence [Unknown]
  - Muscle contracture [Unknown]
  - Neoplasm progression [Unknown]
  - Radiation pneumonitis [Unknown]
  - Disease recurrence [Unknown]
  - Headache [Unknown]
  - Toxicity to various agents [Unknown]
  - Skin toxicity [Unknown]

NARRATIVE: CASE EVENT DATE: 201204
